FAERS Safety Report 6240227-X (Version None)
Quarter: 2009Q2

REPORT INFORMATION
  Report Type: 
  Country: None (occurrence: None)
  Receive Date: 20090623
  Receipt Date: 20080415
  Transmission Date: 20091009
  Serious: No
  Sender: FDA-Public Use
  Company Number: US-ASTRAZENECA-2008UW07667

PATIENT
  Age: 13 Month

DRUGS (4)
  1. PULMICORT RESPULES [Suspect]
     Route: 055
     Dates: start: 20080408
  2. LORATADINE [Concomitant]
  3. AUGMENTIN [Concomitant]
  4. SINGULAIR [Concomitant]

REACTIONS (4)
  - CHILLS [None]
  - CYANOSIS [None]
  - PERIPHERAL COLDNESS [None]
  - TREMOR [None]
